FAERS Safety Report 9594671 (Version 1)
Quarter: 2013Q4

REPORT INFORMATION
  Report Type: Spontaneous
  Country: FR (occurrence: FR)
  Receive Date: 20131004
  Receipt Date: 20131004
  Transmission Date: 20140711
  Serious: Yes (Hospitalization)
  Sender: FDA-Public Use
  Company Number: FR-ELI_LILLY_AND_COMPANY-FR201309007939

PATIENT
  Age: 77 Year
  Sex: Male

DRUGS (7)
  1. GEMZAR [Suspect]
     Indication: PANCREATIC CARCINOMA
     Dosage: 1800 MG, UNK
     Route: 042
     Dates: start: 20110801
  2. AMLOR [Concomitant]
  3. KARDEGIC [Concomitant]
  4. DIFFU K [Concomitant]
  5. ESIDREX [Concomitant]
     Dosage: 25 MG, UNK
  6. INEXIUM [Concomitant]
  7. TRIATEC [Concomitant]

REACTIONS (3)
  - Hypertensive cardiomyopathy [Unknown]
  - Pleural effusion [Unknown]
  - Cardiac failure [Not Recovered/Not Resolved]
